FAERS Safety Report 7681421-0 (Version None)
Quarter: 2011Q3

REPORT INFORMATION
  Report Type: 
  Country: None (occurrence: None)
  Receive Date: 20110812
  Receipt Date: 20110802
  Transmission Date: 20111222
  Serious: Yes (Hospitalization, Other)
  Sender: FDA-Public Use
  Company Number: US-PFIZER INC-2011178842

PATIENT
  Age: 43 Year
  Sex: Female

DRUGS (1)
  1. PROPRANOLOL HCL [Suspect]
     Indication: MIGRAINE
     Dosage: 60 MG, DAILY
     Route: 048

REACTIONS (2)
  - LEFT VENTRICULAR FAILURE [None]
  - CONGESTIVE CARDIOMYOPATHY [None]
